FAERS Safety Report 7108995-2 (Version None)
Quarter: 2010Q4

REPORT INFORMATION
  Report Type: 
  Country: None (occurrence: None)
  Receive Date: 20101117
  Receipt Date: 20101111
  Transmission Date: 20110411
  Serious: Yes (Other)
  Sender: FDA-Public Use
  Company Number: US-PFIZER INC-2010123153

PATIENT
  Sex: Male
  Weight: 90 kg

DRUGS (3)
  1. CARDURA [Suspect]
     Indication: PROSTATE CANCER
     Dosage: 4 MG, 1X/DAY
     Route: 048
     Dates: start: 19990101
  2. CARDURA [Suspect]
     Indication: URINARY RETENTION
  3. CELEBREX [Concomitant]
     Dosage: UNK

REACTIONS (4)
  - CYSTITIS [None]
  - DRUG INEFFECTIVE [None]
  - URINARY RETENTION [None]
  - URINARY TRACT INFECTION [None]
